FAERS Safety Report 9837661 (Version 1)
Quarter: 2013Q4

REPORT INFORMATION
  Report Type: Spontaneous
  Country: US (occurrence: None)
  Receive Date: 20131126
  Receipt Date: 20131126
  Transmission Date: 20140711
  Serious: No
  Sender: FDA-Public Use
  Company Number: KV201300232

PATIENT
  Age: 0 Day
  Sex: 0

DRUGS (1)
  1. MAKENA [Suspect]
     Indication: MATERNAL EXPOSURE DURING PREGNANCY

REACTIONS (2)
  - Premature baby [None]
  - Maternal drugs affecting foetus [None]
